FAERS Safety Report 6630254-2 (Version None)
Quarter: 2010Q1

REPORT INFORMATION
  Report Type: 
  Country: None (occurrence: None)
  Receive Date: 20100311
  Receipt Date: 20100303
  Transmission Date: 20100710
  Serious: Yes (Hospitalization)
  Sender: FDA-Public Use
  Company Number: B0634403A

PATIENT

DRUGS (1)
  1. RELENZA [Suspect]
     Indication: INFLUENZA
     Route: 055

REACTIONS (1)
  - INTERSTITIAL LUNG DISEASE [None]
